FAERS Safety Report 6576655-2 (Version None)
Quarter: 2010Q1

REPORT INFORMATION
  Report Type: 
  Country: None (occurrence: None)
  Receive Date: 20100210
  Receipt Date: 20100129
  Transmission Date: 20100710
  Serious: Yes (Life-Threatening, Hospitalization)
  Sender: FDA-Public Use
  Company Number: DE-WATSON-2010-01390

PATIENT

DRUGS (3)
  1. RISPERIDONE [Suspect]
     Indication: PSYCHOTIC DISORDER
     Dosage: 5 MG, DAILY
     Route: 048
     Dates: start: 20091119, end: 20091203
  2. LEVOMEPROMAZINE [Suspect]
     Indication: PSYCHOTIC DISORDER
     Dosage: 250 MG, DAILY
     Route: 048
     Dates: start: 20091119, end: 20091203
  3. HALOPERIDOL [Suspect]
     Indication: PSYCHOTIC DISORDER
     Dosage: 5 MG, DAILY
     Route: 048
     Dates: start: 20091119, end: 20091203

REACTIONS (6)
  - DYSPHAGIA [None]
  - HYPERHIDROSIS [None]
  - NEUROLEPTIC MALIGNANT SYNDROME [None]
  - PYREXIA [None]
  - RESPIRATORY FAILURE [None]
  - STUPOR [None]
